FAERS Safety Report 8337049-2 (Version None)
Quarter: 2012Q2

REPORT INFORMATION
  Report Type: 
  Country: None (occurrence: None)
  Receive Date: 20120501
  Receipt Date: 20120416
  Transmission Date: 20120825
  Serious: Yes (Hospitalization)
  Sender: FDA-Public Use
  Company Number: DSJ-2012-07396

PATIENT
  Age: 6 Decade
  Sex: Female

DRUGS (4)
  1. MEDICINES (NAME UNKNOWN) [Suspect]
     Indication: ANAEMIA
     Dosage: PER ORAL
     Route: 048
     Dates: start: 20080101
  2. MEDICINES (NAME UNKNOWN) [Suspect]
     Indication: THROMBOCYTOPENIA
     Dosage: PER ORAL
     Route: 048
     Dates: start: 20080101
  3. ATENOLOL [Concomitant]
  4. BENICAR [Suspect]
     Indication: HYPERTENSION
     Dosage: 20 MG (20 MG, 1 IN 1 D), PER ORAL
     Route: 048
     Dates: start: 20080101, end: 20120301

REACTIONS (11)
  - THROMBOCYTOPENIA [None]
  - FATIGUE [None]
  - DRUG ADMINISTRATION ERROR [None]
  - TREATMENT NONCOMPLIANCE [None]
  - GASTRITIS [None]
  - COUGH [None]
  - ANAEMIA [None]
  - UTERINE LEIOMYOMA [None]
  - HAEMORRHAGE [None]
  - DYSPNOEA [None]
  - HEADACHE [None]
